FAERS Safety Report 5639925-8 (Version None)
Quarter: 2008Q1

REPORT INFORMATION
  Report Type: 
  Country: None (occurrence: None)
  Receive Date: 20080227
  Receipt Date: 20080219
  Transmission Date: 20080703
  Serious: Yes (Death, Hospitalization)
  Sender: FDA-Public Use
  Company Number: US-ELI_LILLY_AND_COMPANY-US200802005666

PATIENT
  Age: 35 Year
  Sex: Male

DRUGS (2)
  1. ZYPREXA ZYDIS [Suspect]
  2. ATIVAN [Concomitant]

REACTIONS (2)
  - AGITATION [None]
  - DEATH [None]
